FAERS Safety Report 21470499 (Version 5)
Quarter: 2022Q4

REPORT INFORMATION
  Report Type: Report from Study
  Country: US (occurrence: US)
  Receive Date: 20221018
  Receipt Date: 20221125
  Transmission Date: 20230113
  Serious: Yes (Hospitalization)
  Sender: FDA-Public Use
  Company Number: US-GBT-017260

PATIENT
  Age: 23 Year
  Sex: Male

DRUGS (14)
  1. OXBRYTA [Suspect]
     Active Substance: VOXELOTOR
     Indication: Sickle cell disease
     Dates: start: 20220408
  2. lidocaine (aspercreme) 4% transdermal patch [Concomitant]
     Indication: Sickle cell disease
     Dosage: 1 PATCH
     Route: 062
     Dates: start: 20220821
  3. gabapentin (neurontin) 600 mg tablet [Concomitant]
     Indication: Sickle cell disease
     Route: 048
     Dates: start: 20220809
  4. famotidine (Pepcid) 20 mg tablet [Concomitant]
     Indication: Sickle cell disease
     Route: 048
     Dates: start: 20220728
  5. cholecalciferol (vitamin D3) 25 mcg (1,000 unit) tablet [Concomitant]
     Indication: Product used for unknown indication
     Dosage: 2 TABLET
     Route: 048
     Dates: start: 20220708
  6. hydroxyurea (hydrea) 500 mg capsule [Concomitant]
     Indication: Sickle cell disease
     Dosage: ALTERNATE 1500/2000 MG
     Route: 048
     Dates: start: 20170719
  7. lisinopril (prinivil) 10 mg tablet [Concomitant]
     Indication: Product used for unknown indication
     Route: 048
     Dates: start: 20220401
  8. folic acid (folvite) 1 mg tablet [Concomitant]
     Indication: Sickle cell disease
     Route: 048
     Dates: start: 20121214
  9. crizanlizumab-tmca (Adakveo) in NaCl 0.9% 100 mL infusion [Concomitant]
     Indication: Sickle cell disease
     Dosage: MONTHLY
     Route: 042
     Dates: start: 20211217
  10. amoxicillin (Amoxil) 250 mg capsule [Concomitant]
     Indication: Asplenia
     Route: 048
     Dates: start: 20190322
  11. oxycodone IR (roxicodone) 15 mg immediate release tablet [Concomitant]
     Indication: Sickle cell disease
     Dosage: AS NECESSARY
     Route: 048
     Dates: start: 20200923
  12. morphine (MS CONTIN) 60 mg 12 extended-release tablet [Concomitant]
     Indication: Sickle cell disease
     Route: 048
     Dates: start: 20220531
  13. ibuprofen (motrin) 600 mg tablet [Concomitant]
     Indication: Sickle cell disease
     Dosage: AS NECESSARY (PRN)
     Route: 048
     Dates: start: 20200402
  14. acetaminophen (Tylenol) tablet [Concomitant]
     Indication: Sickle cell disease
     Dosage: ONCE AT ADAKVEO INFUSION
     Route: 048
     Dates: start: 20211217

REACTIONS (2)
  - Sickle cell anaemia with crisis [Recovered/Resolved]
  - Sickle cell anaemia with crisis [Recovered/Resolved]

NARRATIVE: CASE EVENT DATE: 20221010
